FAERS Safety Report 5467069-7 (Version None)
Quarter: 2007Q3

REPORT INFORMATION
  Report Type: 
  Country: None (occurrence: None)
  Receive Date: 20070921
  Receipt Date: 20070921
  Transmission Date: 20080115
  Serious: Yes (Hospitalization)
  Sender: FDA-Public Use
  Company Number: None

PATIENT
  Sex: Female
  Weight: 90 kg

DRUGS (3)
  1. ADRIAMYCIN PFS [Suspect]
  2. CYTOXAN [Suspect]
  3. BONIVA [Suspect]
     Dosage: 3850 MG

REACTIONS (1)
  - FEBRILE NEUTROPENIA [None]
